FAERS Safety Report 8312134-X (Version None)
Quarter: 2012Q2

REPORT INFORMATION
  Report Type: 
  Country: None (occurrence: None)
  Receive Date: 20120425
  Receipt Date: 20120416
  Transmission Date: 20120825
  Serious: Yes (Other)
  Sender: FDA-Public Use
  Company Number: PT-ABBOTT-12P-130-0928071-00

PATIENT
  Sex: Female
  Weight: 58 kg

DRUGS (4)
  1. FOLIC ACID [Concomitant]
     Indication: SAPHO SYNDROME
     Route: 048
     Dates: start: 20100101
  2. HUMIRA [Suspect]
     Indication: SAPHO SYNDROME
     Route: 058
     Dates: end: 20120301
  3. ISONIAZID [Concomitant]
     Indication: ANTIBIOTIC PROPHYLAXIS
     Dates: start: 20111001
  4. METHOTREXATE [Concomitant]
     Indication: SAPHO SYNDROME
     Route: 048
     Dates: start: 20100101

REACTIONS (2)
  - PSORIASIS [None]
  - ALOPECIA [None]
